FAERS Safety Report 10178251 (Version 2)
Quarter: 2014Q2

REPORT INFORMATION
  Report Type: Report from Study
  Country: CD (occurrence: CD)
  Receive Date: 20140519
  Receipt Date: 20140526
  Transmission Date: 20141212
  Serious: Yes (Death, Hospitalization)
  Sender: FDA-Public Use
  Company Number: PHHY2014CD058439

PATIENT
  Sex: Male

DRUGS (4)
  1. GLIVEC [Suspect]
     Indication: CHRONIC MYELOID LEUKAEMIA
     Dosage: 400 MG
     Dates: start: 20111017
  2. GLIVEC [Suspect]
     Dosage: 600 MG
     Dates: end: 20140320
  3. ARACYTINE [Concomitant]
     Dosage: UNK UKN, UNK
     Dates: start: 201403
  4. DAUNORUBICINE [Concomitant]
     Dosage: UNK UKN, UNK
     Dates: start: 201403

REACTIONS (1)
  - Chronic myeloid leukaemia transformation [Fatal]
